FAERS Safety Report 19002697 (Version 3)
Quarter: 2021Q2

REPORT INFORMATION
  Report Type: Spontaneous
  Country: US (occurrence: US)
  Receive Date: 20210312
  Receipt Date: 20210421
  Transmission Date: 20210717
  Serious: Yes (Other)
  Sender: FDA-Public Use
  Company Number: US-NOVEN PHARMACEUTICALS, INC.-2021US001931

PATIENT
  Age: 72 Year
  Sex: Female
  Weight: 85.26 kg

DRUGS (7)
  1. TEMAZEPAM. [Concomitant]
     Active Substance: TEMAZEPAM
     Indication: ANXIETY
     Dosage: 15 MG, UNK
  2. DAYTRANA [Suspect]
     Active Substance: METHYLPHENIDATE
     Indication: PAIN
     Dosage: 30 MG/9HRS, UNK
     Route: 062
     Dates: start: 20210305
  3. HYDROCODONE [Concomitant]
     Active Substance: HYDROCODONE
     Indication: PAIN
     Dosage: UNK
  4. DAYTRANA [Suspect]
     Active Substance: METHYLPHENIDATE
     Indication: MOBILITY DECREASED
     Dosage: 30 MG/9HRS, UNK
     Route: 062
     Dates: start: 202101
  5. DAYTRANA [Suspect]
     Active Substance: METHYLPHENIDATE
     Indication: OFF LABEL USE
     Dosage: 30 MG/9HRS, UNK
     Route: 062
     Dates: start: 2010
  6. LISINOPRIL. [Concomitant]
     Active Substance: LISINOPRIL
     Indication: BLOOD PRESSURE MEASUREMENT
     Dosage: UNK
  7. TEMAZEPAM. [Concomitant]
     Active Substance: TEMAZEPAM
     Indication: SLEEP DISORDER

REACTIONS (7)
  - Malaise [Unknown]
  - Off label use [Not Recovered/Not Resolved]
  - Product quality issue [Not Recovered/Not Resolved]
  - Drug ineffective for unapproved indication [Not Recovered/Not Resolved]
  - Fatigue [Unknown]
  - Contusion [Not Recovered/Not Resolved]
  - Device breakage [Not Recovered/Not Resolved]

NARRATIVE: CASE EVENT DATE: 202101
